FAERS Safety Report 4274635-3 (Version None)
Quarter: 2004Q1

REPORT INFORMATION
  Report Type: 
  Country: None (occurrence: None)
  Receive Date: 20040115
  Receipt Date: 20040105
  Transmission Date: 20041129
  Serious: Yes (Hospitalization)
  Sender: FDA-Public Use
  Company Number: 2004CG00026

PATIENT
  Age: 83 Year
  Sex: Female

DRUGS (3)
  1. NEXIUM [Suspect]
     Dates: start: 20030918
  2. SINTROM [Suspect]
     Dosage: 3 MG DAILY PO
     Route: 048
     Dates: start: 20020301
  3. MOPRAL [Concomitant]

REACTIONS (4)
  - DRUG INTERACTION [None]
  - HYPOPROTHROMBINAEMIA [None]
  - INTERNATIONAL NORMALISED RATIO INCREASED [None]
  - SUPERINFECTION LUNG [None]
